FAERS Safety Report 9675779 (Version 2)
Quarter: 2013Q4

REPORT INFORMATION
  Report Type: Other
  Country: US (occurrence: US)
  Receive Date: 20131107
  Receipt Date: 20131216
  Transmission Date: 20140711
  Serious: Yes (Hospitalization)
  Sender: FDA-Public Use
  Company Number: US-SHIRE-ALL1-2013-07612

PATIENT
  Sex: Male
  Weight: 43.99 kg

DRUGS (4)
  1. PENTASA [Suspect]
     Indication: CROHN^S DISEASE
     Dosage: 500 MG (TWO 250 MG), 1X/DAY:QD
     Route: 048
     Dates: start: 1999
  2. MERCAPTOPURINE [Concomitant]
     Indication: CROHN^S DISEASE
     Dosage: 50 MG, 1X/DAY:QD
     Route: 048
     Dates: start: 1999
  3. FOLIC ACID [Concomitant]
     Indication: NUTRITIONAL SUPPLEMENTATION
     Dosage: 15 MG, 1X/DAY:QD
     Route: 048
     Dates: start: 2008
  4. FISH OIL [Concomitant]
     Indication: NUTRITIONAL SUPPLEMENTATION
     Dosage: 1200 MG, 1X/DAY:QD
     Route: 048
     Dates: start: 201309

REACTIONS (2)
  - Crohn^s disease [Recovered/Resolved]
  - Off label use [Not Recovered/Not Resolved]
